FAERS Safety Report 8549328-4 (Version None)
Quarter: 2012Q2

REPORT INFORMATION
  Report Type: 
  Country: None (occurrence: None)
  Receive Date: 20120416
  Receipt Date: 20110620
  Transmission Date: 20120825
  Serious: Yes (Hospitalization, Other)
  Sender: FDA-Public Use
  Company Number: PHHY2011US53984

PATIENT
  Age: 74 Year
  Sex: Male
  Weight: 60.8 kg

DRUGS (12)
  1. MAGNESIUM (MAGNESIUM) [Concomitant]
  2. VITAMIN A [Concomitant]
  3. METHOTREXATE SODIUM [Concomitant]
  4. PLAQUENIL [Concomitant]
  5. VITAMIN E [Concomitant]
  6. PRAVACHOL [Concomitant]
  7. FOLIC ACID [Concomitant]
  8. LICOPENE/GLUCOSAMINE CHONDROITIN [Concomitant]
  9. DIOVAN [Suspect]
     Indication: HYPERTENSION
     Dosage: 80 MG, QD
     Dates: start: 20040101
  10. PREDNISONE TAB [Concomitant]
  11. VITAMIN D [Concomitant]
  12. ASCORBIC ACID [Concomitant]

REACTIONS (3)
  - SWOLLEN TONGUE [None]
  - HYPERTENSION [None]
  - ANGIOEDEMA [None]
